FAERS Safety Report 10756605 (Version 14)
Quarter: 2015Q4

REPORT INFORMATION
  Report Type: Spontaneous
  Country: CA (occurrence: CA)
  Receive Date: 20150202
  Receipt Date: 20151120
  Transmission Date: 20160304
  Serious: Yes (Hospitalization, Other)
  Sender: FDA-Public Use
  Company Number: CA-GLAXOSMITHKLINE-A1090721A

PATIENT
  Age: 61 Year
  Sex: Female
  Weight: 61 kg

DRUGS (9)
  1. BENLYSTA [Suspect]
     Active Substance: BELIMUMAB
     Dosage: 610MG Q4 WEEKS
     Dates: start: 20140910
  2. BENLYSTA [Suspect]
     Active Substance: BELIMUMAB
     Dosage: 610 MG, Z
     Route: 042
     Dates: start: 20140909
  3. BENLYSTA [Suspect]
     Active Substance: BELIMUMAB
     Dosage: 610 MG, UNK
  4. BENLYSTA [Suspect]
     Active Substance: BELIMUMAB
     Dosage: 610 MG, UNK
     Dates: start: 20140909
  5. BENLYSTA [Suspect]
     Active Substance: BELIMUMAB
     Dosage: 610 MG, UNK
  6. BENLYSTA [Suspect]
     Active Substance: BELIMUMAB
     Indication: SYSTEMIC LUPUS ERYTHEMATOSUS
     Dosage: ON 0,2,4 WEEKS THEN EVERY 4 WEEKS
     Route: 042
     Dates: start: 20140910
  7. BENLYSTA [Suspect]
     Active Substance: BELIMUMAB
     Dosage: UNK
     Dates: start: 201501, end: 201502
  8. BENLYSTA [Suspect]
     Active Substance: BELIMUMAB
     Dosage: 610 MG, UNK
     Dates: end: 20151111
  9. BENLYSTA [Suspect]
     Active Substance: BELIMUMAB
     Dosage: 610 MG, UNK

REACTIONS (23)
  - Systemic lupus erythematosus [Not Recovered/Not Resolved]
  - Pleurisy [Recovering/Resolving]
  - Pneumonia [Recovered/Resolved]
  - Lung infection [Unknown]
  - General physical condition abnormal [Recovering/Resolving]
  - Frustration [Unknown]
  - Cystitis [Unknown]
  - Antibody test abnormal [Unknown]
  - Lower respiratory tract infection [Unknown]
  - Asthenia [Recovering/Resolving]
  - Dehydration [Unknown]
  - Dyspnoea [Recovering/Resolving]
  - Rib fracture [Unknown]
  - Stress [Unknown]
  - Drug ineffective [Unknown]
  - Pelvic fracture [Unknown]
  - Musculoskeletal chest pain [Unknown]
  - Fatigue [Unknown]
  - Condition aggravated [Unknown]
  - Computerised tomogram thorax abnormal [Unknown]
  - Pain [Recovering/Resolving]
  - Malaise [Unknown]
  - Colitis [Unknown]

NARRATIVE: CASE EVENT DATE: 20140910
